FAERS Safety Report 5820222-2 (Version None)
Quarter: 2008Q3

REPORT INFORMATION
  Report Type: 
  Country: None (occurrence: None)
  Receive Date: 20080724
  Receipt Date: 20080723
  Transmission Date: 20090109
  Serious: Yes (Hospitalization)
  Sender: FDA-Public Use
  Company Number: PHEH2000US00571

PATIENT
  Sex: Female
  Weight: 61.8 kg

DRUGS (3)
  1. MYCOPHENOLATE MOFETIL [Suspect]
     Dosage: CODE NOT BROKEN
     Route: 048
     Dates: start: 19981124
  2. SANDIMMUNE [Suspect]
     Dosage: UNKNOWN
     Route: 048
  3. PREDNISONE TAB [Suspect]
     Dosage: UNKNOWN
     Route: 048

REACTIONS (5)
  - CHEST PAIN [None]
  - NAUSEA [None]
  - PYREXIA [None]
  - VIRAL INFECTION [None]
  - VOMITING [None]
